FAERS Safety Report 12772369 (Version 1)
Quarter: 2016Q3

REPORT INFORMATION
  Report Type: Spontaneous
  Country: US (occurrence: US)
  Receive Date: 20160922
  Receipt Date: 20160922
  Transmission Date: 20161109
  Serious: No
  Sender: FDA-Public Use
  Company Number: US-BAYER-2016-180419

PATIENT
  Age: 25 Year
  Sex: Female

DRUGS (1)
  1. SKYLA [Suspect]
     Active Substance: LEVONORGESTREL
     Indication: CONTRACEPTION
     Dosage: 14 MCG/24HR
     Route: 015
     Dates: start: 20160906, end: 20160913

REACTIONS (3)
  - Pain [None]
  - Device expulsion [None]
  - Abdominal pain [None]

NARRATIVE: CASE EVENT DATE: 20160912
